FAERS Safety Report 24969146 (Version 1)
Quarter: 2025Q1

REPORT INFORMATION
  Report Type: Spontaneous
  Country: US (occurrence: US)
  Receive Date: 20250214
  Receipt Date: 20250214
  Transmission Date: 20250409
  Serious: Yes (Other)
  Sender: AMNEAL
  Company Number: US-AMNEAL PHARMACEUTICALS-2024-AMRX-01011

PATIENT
  Age: 63 Year
  Sex: Male

DRUGS (2)
  1. RYTARY [Suspect]
     Active Substance: CARBIDOPA\LEVODOPA
     Indication: Parkinson^s disease
     Route: 065
  2. SEROQUEL [Concomitant]
     Active Substance: QUETIAPINE FUMARATE
     Indication: Product used for unknown indication
     Route: 065
     Dates: start: 20240517

REACTIONS (5)
  - Hallucination [Recovering/Resolving]
  - Panic attack [Recovering/Resolving]
  - Road traffic accident [Recovering/Resolving]
  - Contusion [Recovering/Resolving]
  - Oral contusion [Recovering/Resolving]

NARRATIVE: CASE EVENT DATE: 20240310
